FAERS Safety Report 6190891-9 (Version None)
Quarter: 2009Q2

REPORT INFORMATION
  Report Type: 
  Country: None (occurrence: None)
  Receive Date: 20090513
  Receipt Date: 20090429
  Transmission Date: 20091009
  Serious: Yes (Life-Threatening, Hospitalization)
  Sender: FDA-Public Use
  Company Number: 2009S1007497

PATIENT
  Age: 78 Year
  Sex: Male
  Weight: 75 kg

DRUGS (8)
  1. PRAVASTATIN [Suspect]
     Indication: DYSLIPIDAEMIA
     Dosage: 40 MG; DAILY; ORAL
     Route: 048
     Dates: start: 20070105
  2. FALITHROM (PHENPROCOUMON) [Suspect]
     Indication: ATRIAL FIBRILLATION
     Dosage: ; AS NEEDED; ORAL
     Route: 048
     Dates: start: 20070105, end: 20080530
  3. DIGITOXIN [Concomitant]
  4. DIOVAN [Concomitant]
  5. NEBILET [Concomitant]
  6. HYDROCHLOROTHIAZIDE [Concomitant]
  7. TORSEMIDE [Concomitant]
  8. MOLSIDOMINE [Concomitant]

REACTIONS (7)
  - DIVERTICULUM INTESTINAL [None]
  - DRUG INTERACTION [None]
  - DYSPLASIA [None]
  - EPISTAXIS [None]
  - GASTRITIS EROSIVE [None]
  - GASTROINTESTINAL HAEMORRHAGE [None]
  - HAEMORRHOIDAL HAEMORRHAGE [None]
